FAERS Safety Report 9292106 (Version 3)
Quarter: 2013Q3

REPORT INFORMATION
  Report Type: Spontaneous
  Country: CN (occurrence: CN)
  Receive Date: 20130516
  Receipt Date: 20130703
  Transmission Date: 20140515
  Serious: Yes (Hospitalization, Other)
  Sender: FDA-Public Use
  Company Number: CN-ROCHE-1224237

PATIENT
  Age: 66 Year
  Sex: Male
  Weight: 42.5 kg

DRUGS (6)
  1. HERCEPTIN [Suspect]
     Indication: HER-2 POSITIVE GASTRIC CANCER
     Route: 041
     Dates: start: 201106
  2. HERCEPTIN [Suspect]
     Route: 041
     Dates: start: 20130412
  3. XELODA [Suspect]
     Indication: HER-2 POSITIVE GASTRIC CANCER
     Route: 048
     Dates: start: 201106, end: 201212
  4. PACLITAXEL [Suspect]
     Indication: HER-2 POSITIVE GASTRIC CANCER
     Route: 065
     Dates: start: 201106
  5. GIMERACIL\OTERACIL POTASSIUM [Suspect]
     Indication: HER-2 POSITIVE GASTRIC CANCER
     Route: 065
     Dates: start: 201212
  6. OXALIPLATIN [Suspect]
     Indication: HER-2 POSITIVE GASTRIC CANCER
     Route: 041
     Dates: start: 20130412

REACTIONS (10)
  - Right ventricular failure [Recovered/Resolved]
  - Bone marrow failure [Recovered/Resolved]
  - Pneumonia [Recovered/Resolved]
  - Disease progression [Unknown]
  - Drug ineffective [Unknown]
  - Tachycardia [Unknown]
  - Pleural effusion [Recovering/Resolving]
  - Oedema peripheral [Recovering/Resolving]
  - Blood albumin decreased [Recovering/Resolving]
  - Carcinoembryonic antigen increased [Unknown]
